FAERS Safety Report 4984065-4 (Version None)
Quarter: 2006Q1

REPORT INFORMATION
  Report Type: 
  Country: None (occurrence: None)
  Receive Date: 20060302
  Receipt Date: 20060124
  Transmission Date: 20060701
  Serious: No
  Sender: FDA-Public Use
  Company Number: S06-USA-00297-01

PATIENT
  Sex: Female

DRUGS (1)
  1. CAMPRAL [Suspect]
     Indication: ALCOHOLISM

REACTIONS (1)
  - SKIN ODOUR ABNORMAL [None]
